FAERS Safety Report 21061683 (Version 2)
Quarter: 2022Q3

REPORT INFORMATION
  Report Type: Spontaneous
  Country: US (occurrence: US)
  Receive Date: 20220709
  Receipt Date: 20220713
  Transmission Date: 20221027
  Serious: Yes (Other)
  Sender: FDA-Public Use
  Company Number: US-SANOFI-01176186

PATIENT
  Age: 39 Year
  Sex: Female

DRUGS (1)
  1. DUPIXENT [Suspect]
     Active Substance: DUPILUMAB
     Indication: Dermatitis atopic
     Dosage: 600 MG

REACTIONS (8)
  - Anaphylactic reaction [Unknown]
  - Throat tightness [Unknown]
  - Erythema [Unknown]
  - Feeling hot [Unknown]
  - Urticaria [Unknown]
  - Pruritus [Unknown]
  - Injection site erythema [Unknown]
  - Injection site pain [Unknown]
